FAERS Safety Report 13077937 (Version 1)
Quarter: 2017Q1

REPORT INFORMATION
  Report Type: Report from Study
  Country: None (occurrence: BR)
  Receive Date: 20170102
  Receipt Date: 20170102
  Transmission Date: 20170428
  Serious: Yes (Other)
  Sender: FDA-Public Use
  Company Number: BR-ABBVIE-16K-020-1825204-00

PATIENT
  Age: 25 Year
  Sex: Female
  Weight: 120 kg

DRUGS (1)
  1. HUMIRA [Suspect]
     Active Substance: ADALIMUMAB
     Indication: RHEUMATOID ARTHRITIS
     Route: 058
     Dates: start: 20160524, end: 20161025

REACTIONS (5)
  - Abortion missed [Recovered/Resolved]
  - Exposure during pregnancy [Recovered/Resolved]
  - Joint swelling [Not Recovered/Not Resolved]
  - Foetal death [Unknown]
  - Arthralgia [Recovering/Resolving]

NARRATIVE: CASE EVENT DATE: 2016
